FAERS Safety Report 25632617 (Version 2)
Quarter: 2025Q3

REPORT INFORMATION
  Report Type: Spontaneous
  Country: US (occurrence: US)
  Receive Date: 20250801
  Receipt Date: 20250812
  Transmission Date: 20251021
  Serious: No
  Sender: Vantive US Healthcare
  Company Number: US-VANTIVE-2025VAN003478

PATIENT
  Sex: Female

DRUGS (1)
  1. DIANEAL LOW CALCIUM PERITONEAL DIALYSIS SOLUTION WITH DEXTROSE [Suspect]
     Active Substance: CALCIUM CHLORIDE\DEXTROSE\MAGNESIUM CHLORIDE\SODIUM CHLORIDE\SODIUM LACTATE
     Indication: End stage renal disease
     Route: 033

REACTIONS (4)
  - Dyspepsia [Recovering/Resolving]
  - Gastrooesophageal reflux disease [Unknown]
  - Expired product administered [Unknown]
  - Nausea [Recovering/Resolving]
